FAERS Safety Report 5832324-5 (Version None)
Quarter: 2008Q3

REPORT INFORMATION
  Report Type: 
  Country: None (occurrence: None)
  Receive Date: 20080804
  Receipt Date: 20080729
  Transmission Date: 20090109
  Serious: Yes (Hospitalization)
  Sender: FDA-Public Use
  Company Number: B0528813A

PATIENT
  Age: 78 Year
  Sex: Male

DRUGS (4)
  1. ZANTAC [Suspect]
     Dosage: 100MG TWICE PER DAY
     Route: 042
     Dates: start: 20080614, end: 20080615
  2. CEFAMEZIN [Suspect]
     Indication: DRUG USE FOR UNKNOWN INDICATION
     Dosage: 1G TWICE PER DAY
     Route: 065
     Dates: start: 20080613, end: 20080615
  3. ALEVIATIN [Concomitant]
     Dosage: 250MG PER DAY
     Dates: start: 20080601, end: 20080623
  4. PHENOBARBITAL TAB [Concomitant]
     Dosage: 100MG PER DAY
     Dates: start: 20080613, end: 20080614

REACTIONS (1)
  - INTERSTITIAL LUNG DISEASE [None]
